FAERS Safety Report 12354979 (Version 13)
Quarter: 2020Q3

REPORT INFORMATION
  Report Type: Report from Study
  Country: JP (occurrence: JP)
  Receive Date: 20160511
  Receipt Date: 20200820
  Transmission Date: 20201102
  Serious: Yes (Hospitalization, Other)
  Sender: FDA-Public Use
  Company Number: JP-OTSUKA-2016_007936AA

PATIENT
  Age: 55 Year
  Sex: Male
  Weight: 63.7 kg

DRUGS (19)
  1. TOLVAPTAN [Suspect]
     Active Substance: TOLVAPTAN
     Indication: CONGENITAL CYSTIC KIDNEY DISEASE
     Dosage: 75 MG, QD (IN THE MORNING)
     Route: 048
     Dates: start: 20150529, end: 20160128
  2. FEBURIC [Concomitant]
     Active Substance: FEBUXOSTAT
     Dosage: 40 MG, QD
     Route: 048
     Dates: start: 20190808
  3. ESFLURBIPROFEN. [Concomitant]
     Active Substance: ESFLURBIPROFEN
     Indication: PRODUCT USED FOR UNKNOWN INDICATION
     Dosage: 1 SHEET, QD
     Route: 065
     Dates: start: 20180728
  4. TOLVAPTAN [Suspect]
     Active Substance: TOLVAPTAN
     Dosage: 45 MG, QD(IN THE MORNING)
     Route: 048
     Dates: start: 20150511, end: 20150528
  5. PRIMPERAN [Concomitant]
     Active Substance: METOCLOPRAMIDE HYDROCHLORIDE
     Indication: PROPHYLAXIS
     Dosage: 5 MG, DAILY DOSE, PRN
     Route: 048
     Dates: start: 20150901, end: 20151013
  6. AVAPRO [Concomitant]
     Active Substance: IRBESARTAN
     Indication: PRODUCT USED FOR UNKNOWN INDICATION
     Dosage: 100 MG, QD
     Route: 048
     Dates: end: 20160401
  7. TOLVAPTAN [Suspect]
     Active Substance: TOLVAPTAN
     Dosage: 60 MG/DAY, DIVIDED INTO 2 DOSES
     Route: 048
     Dates: start: 20160510, end: 20161115
  8. ATELEC [Concomitant]
     Active Substance: CILNIDIPINE
     Indication: PRODUCT USED FOR UNKNOWN INDICATION
     Dosage: 20 MG, QD
     Route: 048
     Dates: end: 20161115
  9. TOLVAPTAN [Suspect]
     Active Substance: TOLVAPTAN
     Dosage: 90 MG/DAY, DIVIDED INTO 2 DOSES
     Route: 048
     Dates: start: 20161116, end: 20171020
  10. FEBURIC [Concomitant]
     Active Substance: FEBUXOSTAT
     Indication: PRODUCT USED FOR UNKNOWN INDICATION
     Dosage: 10 MG, QD
     Route: 048
     Dates: start: 20150514, end: 20150622
  11. DOXAZOSIN [Concomitant]
     Active Substance: DOXAZOSIN MESYLATE
     Indication: PRODUCT USED FOR UNKNOWN INDICATION
     Dosage: 2 MG, QD
     Route: 048
     Dates: end: 20160916
  12. TOLVAPTAN [Suspect]
     Active Substance: TOLVAPTAN
     Dosage: 15 MG, QD (IN THE EVENING)
     Route: 048
     Dates: start: 20150529, end: 20160128
  13. TOLVAPTAN [Suspect]
     Active Substance: TOLVAPTAN
     Dosage: 120 MG/DAY, DIVIDED INTO 2 DOSES
     Route: 048
     Dates: start: 20160129, end: 20160401
  14. LEVOFLOXACIN. [Concomitant]
     Active Substance: LEVOFLOXACIN
     Indication: PROPHYLAXIS
     Dosage: 250 MG, QD
     Route: 048
     Dates: start: 20190821, end: 20190826
  15. FEBURIC [Concomitant]
     Active Substance: FEBUXOSTAT
     Dosage: 20 MG, QD
     Route: 048
     Dates: start: 20150623, end: 20160401
  16. TOLVAPTAN [Suspect]
     Active Substance: TOLVAPTAN
     Dosage: 15 MG, QD(IN THE EVENING)
     Route: 048
     Dates: start: 20150511, end: 20150528
  17. TOLVAPTAN [Suspect]
     Active Substance: TOLVAPTAN
     Dosage: 90 MG, QD
     Route: 048
     Dates: start: 20171021
  18. FEBURIC [Concomitant]
     Active Substance: FEBUXOSTAT
     Dosage: 10 MG, QD
     Route: 048
     Dates: start: 20160511, end: 20160916
  19. FEBURIC [Concomitant]
     Active Substance: FEBUXOSTAT
     Dosage: 20 MG, QD
     Route: 048
     Dates: start: 20160917, end: 20170602

REACTIONS (19)
  - Blood creatinine increased [Not Recovered/Not Resolved]
  - Hypernatraemia [Recovered/Resolved]
  - Pyrexia [Recovered/Resolved]
  - Hypernatraemia [Recovered/Resolved]
  - Blood pressure inadequately controlled [Recovered/Resolved]
  - Inappropriate schedule of product administration [Unknown]
  - Polyuria [Unknown]
  - Dehydration [Unknown]
  - Hyperuricaemia [Recovering/Resolving]
  - Inflammation [Recovering/Resolving]
  - Oedema peripheral [Recovering/Resolving]
  - Muscle spasms [Recovered/Resolved]
  - Hyperuricaemia [Recovering/Resolving]
  - Hyperuricaemia [Recovered/Resolved]
  - Muscle spasms [Not Recovered/Not Resolved]
  - Blood creatine phosphokinase increased [Recovered/Resolved]
  - Transaminases increased [Recovered/Resolved]
  - Thirst [Recovering/Resolving]
  - Spinal osteoarthritis [Recovering/Resolving]

NARRATIVE: CASE EVENT DATE: 20150512
